FAERS Safety Report 5036000-0 (Version None)
Quarter: 2006Q2

REPORT INFORMATION
  Report Type: 
  Country: None (occurrence: None)
  Receive Date: 20060526
  Receipt Date: 20060424
  Transmission Date: 20061013
  Serious: No
  Sender: FDA-Public Use
  Company Number: 220447

PATIENT
  Sex: Male

DRUGS (1)
  1. RAPTIVA [Suspect]
     Indication: PSORIASIS
     Dosage: 1 ML, 1/WEEK
     Dates: start: 20050901

REACTIONS (3)
  - ACCIDENTAL NEEDLE STICK [None]
  - FATIGUE [None]
  - HEADACHE [None]
